FAERS Safety Report 6807912-X (Version None)
Quarter: 2010Q2

REPORT INFORMATION
  Report Type: 
  Country: None (occurrence: None)
  Receive Date: 20100629
  Receipt Date: 20090325
  Transmission Date: 20101027
  Serious: No
  Sender: FDA-Public Use
  Company Number: US-PFIZER INC-2009157851

PATIENT
  Sex: Male
  Weight: 81.6 kg

DRUGS (5)
  1. REVATIO [Suspect]
     Indication: PULMONARY HYPERTENSION
     Dosage: 20 MG, 3X/DAY
  2. OXYGEN [Concomitant]
     Dosage: UNK
  3. LASIX [Concomitant]
     Indication: HYPERTENSION
     Dosage: 40 MG, 2X/DAY
  4. CUMADIN [Concomitant]
     Dosage: UNK
  5. TAMSULOSIN HYDROCHLORIDE [Concomitant]
     Dosage: UNK

REACTIONS (3)
  - ABDOMINAL DISCOMFORT [None]
  - DIZZINESS [None]
  - INSOMNIA [None]
